FAERS Safety Report 6015196-8 (Version None)
Quarter: 2008Q4

REPORT INFORMATION
  Report Type: 
  Country: None (occurrence: None)
  Receive Date: 20081218
  Receipt Date: 20081202
  Transmission Date: 20090506
  Serious: Yes (Death)
  Sender: FDA-Public Use
  Company Number: KV200800850

PATIENT
  Age: 92 Year
  Sex: Male
  Weight: 68 kg

DRUGS (2)
  1. ISOSORBIDE MONONITRATE [Suspect]
     Indication: HEART RATE IRREGULAR
     Dosage: ORAL
     Route: 048
     Dates: end: 20080601
  2. MULTIPLE [Concomitant]

REACTIONS (4)
  - ASTHENIA [None]
  - CHRONIC OBSTRUCTIVE PULMONARY DISEASE [None]
  - FATIGUE [None]
  - PRODUCT QUALITY ISSUE [None]
